FAERS Safety Report 9350199 (Version 1)
Quarter: 2013Q2

REPORT INFORMATION
  Report Type: Spontaneous
  Country: BR (occurrence: BR)
  Receive Date: 20130617
  Receipt Date: 20130617
  Transmission Date: 20140414
  Serious: Yes (Other)
  Sender: FDA-Public Use
  Company Number: BR-AMGEN-BRASP2013042048

PATIENT
  Age: 49 Year
  Sex: Female
  Weight: 60 kg

DRUGS (4)
  1. ENBREL [Suspect]
     Indication: PRODUCT USED FOR UNKNOWN INDICATION
     Dosage: AT TWO APPLICATIONS OF 25 MG PER WEEK
     Route: 065
     Dates: start: 2012
  2. PREDNISONE [Suspect]
     Dosage: UNK
  3. MELOXICAM [Concomitant]
     Dosage: UNK
  4. METHOTREXATE SODIUM [Concomitant]
     Dosage: UNK

REACTIONS (9)
  - Accident [Unknown]
  - Fall [Unknown]
  - Pain in extremity [Unknown]
  - Local swelling [Unknown]
  - Arthralgia [Unknown]
  - Joint swelling [Unknown]
  - Pain [Not Recovered/Not Resolved]
  - Weight decreased [Unknown]
  - Wound infection [Unknown]
